FAERS Safety Report 8452403-6 (Version None)
Quarter: 2012Q2

REPORT INFORMATION
  Report Type: 
  Country: None (occurrence: None)
  Receive Date: 20120620
  Receipt Date: 20120517
  Transmission Date: 20120825
  Serious: No
  Sender: FDA-Public Use
  Company Number: US-VERTEX PHARMACEUTICALS INC.-AE-2012-005129

PATIENT
  Sex: Male
  Weight: 90.8 kg

DRUGS (4)
  1. INCIVEK [Suspect]
     Indication: HEPATITIS C
     Route: 048
     Dates: start: 20120403
  2. XANAX [Concomitant]
     Indication: ANXIETY
     Route: 048
  3. PEGASYS [Concomitant]
     Indication: HEPATITIS C
     Route: 058
     Dates: start: 20120403
  4. RIBAVIRIN [Concomitant]
     Indication: HEPATITIS C
     Route: 048
     Dates: start: 20120403

REACTIONS (8)
  - FEELING ABNORMAL [None]
  - FATIGUE [None]
  - PROSTATIC DISORDER [None]
  - NAUSEA [None]
  - ABDOMINAL DISTENSION [None]
  - VOMITING [None]
  - DIZZINESS [None]
  - DYSPNOEA [None]
